FAERS Safety Report 7205757-2 (Version None)
Quarter: 2010Q4

REPORT INFORMATION
  Report Type: 
  Country: None (occurrence: None)
  Receive Date: 20101231
  Receipt Date: 20101223
  Transmission Date: 20110411
  Serious: Yes (Other)
  Sender: FDA-Public Use
  Company Number: US-BRISTOL-MYERS SQUIBB COMPANY-15464290

PATIENT
  Age: 71 Year
  Sex: Female

DRUGS (2)
  1. PACLITAXEL [Suspect]
     Indication: ENDOMETRIAL CANCER
  2. CARBOPLATIN [Suspect]
     Indication: ENDOMETRIAL CANCER

REACTIONS (1)
  - HEPATITIS B [None]
